FAERS Safety Report 16275410 (Version 2)
Quarter: 2019Q2

REPORT INFORMATION
  Report Type: Spontaneous
  Country: AR (occurrence: AR)
  Receive Date: 20190504
  Receipt Date: 20190604
  Transmission Date: 20190711
  Serious: Yes (Other)
  Sender: FDA-Public Use
  Company Number: PHHY2019AR101579

PATIENT
  Age: 66 Year
  Sex: Female

DRUGS (1)
  1. COSENTYX [Suspect]
     Active Substance: SECUKINUMAB
     Indication: PSORIASIS
     Dosage: UNK
     Route: 065
     Dates: start: 201902

REACTIONS (10)
  - Lordosis [Unknown]
  - Vertebral foraminal stenosis [Unknown]
  - Intervertebral disc disorder [Unknown]
  - Monoparesis [Unknown]
  - Intervertebral disc degeneration [Unknown]
  - Nasal injury [Unknown]
  - Spinal disorder [Unknown]
  - Vertebral osteophyte [Unknown]
  - Basal cell carcinoma [Unknown]
  - Intervertebral disc protrusion [Unknown]

NARRATIVE: CASE EVENT DATE: 201904
